FAERS Safety Report 12177445 (Version 1)
Quarter: 2016Q1

REPORT INFORMATION
  Report Type: Spontaneous
  Country: JP (occurrence: JP)
  Receive Date: 20160314
  Receipt Date: 20160314
  Transmission Date: 20160526
  Serious: Yes (Other)
  Sender: FDA-Public Use
  Company Number: JP-MYLANLABS-2016M1010857

PATIENT

DRUGS (1)
  1. VANCOMYCIN MYLAN [Suspect]
     Active Substance: VANCOMYCIN
     Indication: STAPHYLOCOCCAL INFECTION
     Route: 041

REACTIONS (3)
  - Feeling abnormal [Recovering/Resolving]
  - Palpitations [Recovering/Resolving]
  - Anaphylactic reaction [Recovering/Resolving]
